FAERS Safety Report 6248880-1 (Version None)
Quarter: 2009Q2

REPORT INFORMATION
  Report Type: 
  Country: None (occurrence: None)
  Receive Date: 20090629
  Receipt Date: 20090615
  Transmission Date: 20091009
  Serious: Yes (Disabling, Other)
  Sender: FDA-Public Use
  Company Number: AU-PFIZER INC-2009226669

PATIENT

DRUGS (4)
  1. CHAMPIX [Suspect]
     Dosage: UNK
     Dates: start: 20081101, end: 20090101
  2. METFORMIN HYDROCHLORIDE [Concomitant]
     Dosage: 1000 MG, 2X/DAY
  3. CRESTOR [Concomitant]
     Dosage: 40 MG, 1X/DAY
  4. PERINDOPRIL ERBUMINE [Concomitant]
     Dosage: 8 MG, 1X/DAY

REACTIONS (12)
  - AGEUSIA [None]
  - ARTERIOSCLEROSIS [None]
  - COORDINATION ABNORMAL [None]
  - GAIT DISTURBANCE [None]
  - GINGIVAL BLEEDING [None]
  - HEMIPARESIS [None]
  - IMPAIRED WORK ABILITY [None]
  - PARAESTHESIA ORAL [None]
  - SENSITIVITY OF TEETH [None]
  - SPEECH DISORDER [None]
  - TREMOR [None]
  - VISUAL IMPAIRMENT [None]
